FAERS Safety Report 7814080-4 (Version None)
Quarter: 2011Q4

REPORT INFORMATION
  Report Type: 
  Country: None (occurrence: None)
  Receive Date: 20111014
  Receipt Date: 20111003
  Transmission Date: 20120403
  Serious: No
  Sender: FDA-Public Use
  Company Number: US-JNJFOC-20111001855

PATIENT
  Sex: Male
  Weight: 70.31 kg

DRUGS (2)
  1. INVEGA [Suspect]
     Indication: SCHIZOAFFECTIVE DISORDER BIPOLAR TYPE
     Route: 048
     Dates: start: 20101001, end: 20111001
  2. INVEGA [Suspect]
     Route: 048
     Dates: start: 20111002

REACTIONS (4)
  - PRODUCT QUALITY ISSUE [None]
  - WRONG TECHNIQUE IN DRUG USAGE PROCESS [None]
  - ACTIVITIES OF DAILY LIVING IMPAIRED [None]
  - INTENTIONAL DRUG MISUSE [None]
